FAERS Safety Report 12986842 (Version 1)
Quarter: 2016Q4

REPORT INFORMATION
  Report Type: Report from Study
  Country: TR (occurrence: TR)
  Receive Date: 20161130
  Receipt Date: 20161130
  Transmission Date: 20170207
  Serious: Yes (Hospitalization, Other)
  Sender: FDA-Public Use
  Company Number: TR-BRISTOL-MYERS SQUIBB COMPANY-BMS-2016-101153

PATIENT
  Age: 65 Year
  Sex: Female

DRUGS (1)
  1. WARFARIN SODIUM. [Suspect]
     Active Substance: WARFARIN SODIUM
     Indication: ANTICOAGULANT THERAPY
     Dosage: 5 MG, UNK
     Route: 065

REACTIONS (4)
  - Anticoagulation drug level below therapeutic [Recovered/Resolved]
  - Haematuria [Recovered/Resolved]
  - Cardiac valve replacement complication [Recovered/Resolved]
  - Therapeutic response decreased [Recovered/Resolved]
